FAERS Safety Report 9999376 (Version 1)
Quarter: 2014Q1

REPORT INFORMATION
  Report Type: Spontaneous
  Country: US (occurrence: None)
  Receive Date: 20140311
  Receipt Date: 20140311
  Transmission Date: 20141002
  Serious: Yes (Hospitalization)
  Sender: FDA-Public Use
  Company Number: None

PATIENT
  Age: 88 Year
  Sex: Male
  Weight: 56.1 kg

DRUGS (1)
  1. METHYLPHENIDATE [Suspect]
     Route: 048
     Dates: start: 20130626, end: 20130710

REACTIONS (2)
  - Hypotension [None]
  - Syncope [None]
